FAERS Safety Report 21522182 (Version 1)
Quarter: 2022Q4

REPORT INFORMATION
  Report Type: Report from Study
  Country: US (occurrence: US)
  Receive Date: 20221028
  Receipt Date: 20221028
  Transmission Date: 20230113
  Serious: Yes (Other)
  Sender: FDA-Public Use
  Company Number: US-ALNYLAM PHARMACEUTICALS, INC.-ALN-2022-003739

PATIENT

DRUGS (3)
  1. ONPATTRO [Suspect]
     Active Substance: PATISIRAN SODIUM
     Indication: Hereditary neuropathic amyloidosis
     Dosage: UNK
     Route: 065
     Dates: start: 20190613, end: 20190613
  2. CARBAMAZEPINE [Concomitant]
     Active Substance: CARBAMAZEPINE
     Indication: Muscle spasms
     Route: 065
  3. MAGNESIUM OXIDE [Concomitant]
     Active Substance: MAGNESIUM OXIDE
     Indication: Muscle spasms
     Route: 065

REACTIONS (26)
  - Encephalitis [Unknown]
  - Sensory loss [Unknown]
  - Musculoskeletal stiffness [Unknown]
  - Erythema [Unknown]
  - Peripheral swelling [Unknown]
  - Chest pain [Unknown]
  - Palpitations [Unknown]
  - Dyspepsia [Unknown]
  - Hypoaesthesia [Recovering/Resolving]
  - Ill-defined disorder [Unknown]
  - Muscle tightness [Unknown]
  - Ill-defined disorder [Unknown]
  - Vitamin A decreased [Unknown]
  - Oedema peripheral [Unknown]
  - Blood pressure decreased [Unknown]
  - Fatigue [Unknown]
  - Insomnia [Unknown]
  - Vision blurred [Unknown]
  - Eye movement disorder [Unknown]
  - Ocular discomfort [Unknown]
  - Pain [Unknown]
  - Weight decreased [Unknown]
  - Muscle spasms [Unknown]
  - Pseudohallucination [Unknown]
  - Asthenia [Unknown]
  - Swelling [Unknown]

NARRATIVE: CASE EVENT DATE: 20220810
